FAERS Safety Report 9948390 (Version 1)
Quarter: 2014Q1

REPORT INFORMATION
  Report Type: Report from Study
  Country: US (occurrence: US)
  Receive Date: 20140303
  Receipt Date: 20140303
  Transmission Date: 20141002
  Serious: No
  Sender: FDA-Public Use
  Company Number: US-ABBVIE-13P-163-1057200-00

PATIENT
  Age: 23 Year
  Sex: Female
  Weight: 63.56 kg

DRUGS (12)
  1. HUMIRA [Suspect]
     Indication: CROHN^S DISEASE
     Dates: start: 2010
  2. HUMIRA [Suspect]
     Indication: POLYARTHRITIS
  3. NEXIUM [Concomitant]
     Indication: GASTROOESOPHAGEAL REFLUX DISEASE
  4. ASACHOL [Concomitant]
     Indication: CROHN^S DISEASE
  5. FOLIC ACID [Concomitant]
     Indication: PRODUCT USED FOR UNKNOWN INDICATION
  6. PREDNISONE [Concomitant]
     Indication: CROHN^S DISEASE
  7. ENTOCORT [Concomitant]
     Indication: RECTAL HAEMORRHAGE
  8. ZIRTEC [Concomitant]
     Indication: HYPERSENSITIVITY
  9. ONDANSETRON [Concomitant]
     Indication: NAUSEA
  10. BENTYL [Concomitant]
     Indication: CROHN^S DISEASE
  11. CARAFATE [Concomitant]
     Indication: GASTROOESOPHAGEAL REFLUX DISEASE
  12. VITAMIN B12 [Concomitant]
     Indication: ARTHRITIS
     Route: 050

REACTIONS (5)
  - Off label use [Not Recovered/Not Resolved]
  - Cough [Recovering/Resolving]
  - Oropharyngeal pain [Recovering/Resolving]
  - Dyspnoea [Recovering/Resolving]
  - Increased upper airway secretion [Recovering/Resolving]
